FAERS Safety Report 17014476 (Version 3)
Quarter: 2020Q1

REPORT INFORMATION
  Report Type: Report from Study
  Country: IT (occurrence: IT)
  Receive Date: 20191111
  Receipt Date: 20200107
  Transmission Date: 20200409
  Serious: Yes (Other)
  Sender: FDA-Public Use
  Company Number: IT-ACCORD-160482

PATIENT
  Age: 89 Year
  Sex: Female

DRUGS (6)
  1. LASIX [Concomitant]
     Active Substance: FUROSEMIDE
     Dosage: STRENGTH 25 MG
     Route: 048
  2. HALDOL [Suspect]
     Active Substance: HALOPERIDOL
     Indication: SEDATION
     Dosage: STRENGTH 2 MG/ML
     Route: 048
     Dates: start: 20190902, end: 20190903
  3. TALOFEN [Suspect]
     Active Substance: PROMAZINE HYDROCHLORIDE
     Indication: SEDATION
     Dosage: STRENGTH 4 G/100 ML
     Route: 048
     Dates: start: 20190902, end: 20190903
  4. AMLODIPINE [Suspect]
     Active Substance: AMLODIPINE BESYLATE
     Indication: HYPERTENSION
     Route: 048
  5. TAVOR (LORAZEPAM) [Suspect]
     Active Substance: LORAZEPAM
     Indication: SEDATION
     Dosage: STRENGTH 2.5 MG
     Route: 048
     Dates: start: 20190902, end: 20190903
  6. QUETIAPINE. [Suspect]
     Active Substance: QUETIAPINE
     Indication: AGITATION
     Route: 048
     Dates: start: 20190902, end: 20190903

REACTIONS (4)
  - Vasculitis [Recovering/Resolving]
  - Overdose [Unknown]
  - Oedema peripheral [Recovering/Resolving]
  - Sedation [Recovering/Resolving]

NARRATIVE: CASE EVENT DATE: 20190903
